FAERS Safety Report 7285522-0 (Version None)
Quarter: 2011Q1

REPORT INFORMATION
  Report Type: 
  Country: None (occurrence: None)
  Receive Date: 20110210
  Receipt Date: 20110202
  Transmission Date: 20110831
  Serious: Yes (Hospitalization)
  Sender: FDA-Public Use
  Company Number: US-ELI_LILLY_AND_COMPANY-US201102001284

PATIENT
  Sex: Male

DRUGS (12)
  1. EMLA [Concomitant]
     Indication: PROPHYLAXIS
     Dates: start: 20100304
  2. ONDANSERTRON HCL [Concomitant]
     Indication: PROPHYLAXIS
     Dates: start: 20100225
  3. PARACETAMOL [Concomitant]
     Indication: PAIN
  4. ATIVAN [Concomitant]
     Indication: NAUSEA
     Dates: start: 20100225
  5. METFORMIN [Concomitant]
     Indication: HYPERGLYCAEMIA
     Dates: start: 20100429
  6. ATENOLOL [Concomitant]
     Indication: HYPERTENSION
     Dosage: UNK, UNK
  7. ACETAMINOPHEN [Concomitant]
     Dosage: UNK, UNK
  8. ACETAMINOPHEN AND HYDROCODONE BITARTRATE [Concomitant]
     Dosage: UNK, UNK
  9. PLAVIX [Concomitant]
     Indication: CORONARY ARTERY DISEASE
     Dosage: UNK, UNK
  10. GEMCITABINE HYDROCHLORIDE [Suspect]
     Indication: PANCREATIC CARCINOMA
     Dosage: 1000 MG/M2, UNK
     Dates: start: 20100302
  11. CRESTOR [Concomitant]
     Indication: CORONARY ARTERY DISEASE
     Dosage: UNK, UNK
  12. LORTAB [Concomitant]
     Indication: PAIN
     Dates: start: 20100302

REACTIONS (2)
  - FEBRILE NEUTROPENIA [None]
  - SEPSIS [None]
